FAERS Safety Report 8954773 (Version 1)
Quarter: 2012Q4

REPORT INFORMATION
  Report Type: 
  Country: FR (occurrence: FR)
  Receive Date: 20121207
  Receipt Date: 20121207
  Transmission Date: 20130627
  Serious: Yes (Hospitalization)
  Sender: FDA-Public Use
  Company Number: FR-GLAXOSMITHKLINE-B0849470A

PATIENT
  Age: 58 Year
  Sex: Female

DRUGS (5)
  1. RANIPLEX [Suspect]
     Indication: PREMEDICATION
     Dosage: 150MG per day
     Route: 042
     Dates: start: 20120927, end: 20120927
  2. EMEND [Suspect]
     Indication: PREMEDICATION
     Dosage: 120MG Single dose
     Route: 048
     Dates: start: 20120927, end: 20120927
  3. CETIRIZINE [Suspect]
     Indication: PREMEDICATION
     Dosage: 10MG Single dose
     Route: 048
     Dates: start: 20120927, end: 20120927
  4. CARBOPLATINE [Concomitant]
     Indication: CHEMOTHERAPY
     Route: 065
     Dates: start: 20101208
  5. TAXOL [Concomitant]
     Indication: CHEMOTHERAPY
     Route: 065
     Dates: start: 20101208

REACTIONS (2)
  - Hypovolaemia [Recovered/Resolved]
  - Hypotension [Recovered/Resolved]
